FAERS Safety Report 7034298-0 (Version None)
Quarter: 2010Q4

REPORT INFORMATION
  Report Type: 
  Country: None (occurrence: None)
  Receive Date: 20101008
  Receipt Date: 20100907
  Transmission Date: 20110411
  Serious: No
  Sender: FDA-Public Use
  Company Number: US-BAYER-201035496NA

PATIENT
  Age: 18 Year
  Sex: Female

DRUGS (2)
  1. YAZ [Suspect]
     Indication: ACNE
     Dosage: WHEN THE DOCTOR STARTED HER OUT, IT WAS THE MIDDLE OF HER CYCLE
     Route: 048
     Dates: start: 20100101, end: 20100101
  2. YAZ [Suspect]
     Route: 048
     Dates: start: 20100701

REACTIONS (1)
  - MENSTRUAL DISORDER [None]
